FAERS Safety Report 15293226 (Version 3)
Quarter: 2018Q4

REPORT INFORMATION
  Report Type: Spontaneous
  Country: FR (occurrence: FR)
  Receive Date: 20180820
  Receipt Date: 20181011
  Transmission Date: 20190204
  Serious: Yes (Other)
  Sender: FDA-Public Use
  Company Number: FR-ROCHE-2169536

PATIENT
  Age: 54 Year
  Sex: Male

DRUGS (7)
  1. ALECENSA [Suspect]
     Active Substance: ALECTINIB HYDROCHLORIDE
     Dosage: RESTARTED
     Route: 065
  2. NAVELBINE [Concomitant]
     Active Substance: VINORELBINE TARTRATE
  3. ALECENSA [Suspect]
     Active Substance: ALECTINIB HYDROCHLORIDE
     Indication: LUNG NEOPLASM MALIGNANT
     Dosage: INTERRUPTED
     Route: 065
  4. ALECENSA [Suspect]
     Active Substance: ALECTINIB HYDROCHLORIDE
     Dosage: RESTARTED
     Route: 065
  5. ALECENSA [Suspect]
     Active Substance: ALECTINIB HYDROCHLORIDE
     Dosage: INTERRUPTED FOR 15 DAYS DUE TO EVENT
     Route: 065
  6. CARBOPLATINE [Concomitant]
     Active Substance: CARBOPLATIN
  7. XALKORI [Concomitant]
     Active Substance: CRIZOTINIB

REACTIONS (6)
  - Feeling cold [Recovered/Resolved]
  - Paraesthesia [Recovered/Resolved]
  - Pulmonary embolism [Unknown]
  - Limb discomfort [Recovered/Resolved]
  - Skin burning sensation [Not Recovered/Not Resolved]
  - Headache [Unknown]

NARRATIVE: CASE EVENT DATE: 20180720
